FAERS Safety Report 8226143-2 (Version None)
Quarter: 2012Q1

REPORT INFORMATION
  Report Type: 
  Country: None (occurrence: None)
  Receive Date: 20120307
  Receipt Date: 20091229
  Transmission Date: 20120608
  Serious: No
  Sender: FDA-Public Use
  Company Number: PHEH2009US18740

PATIENT
  Age: 68 Year
  Sex: Male

DRUGS (16)
  1. ATENOLOL [Concomitant]
  2. VITAMIN D [Concomitant]
  3. GINSENG (GINSENG, GINSENG NOS) [Concomitant]
  4. CALCIUM MAGNESIUM ZINC (CALCIUM, MAGNESIUM, ZINC) [Concomitant]
  5. ASCORBIC ACID [Suspect]
  6. CRESTOR [Concomitant]
  7. TEA, GREEN (CAMELLIA SINENSIS, TEA, GREEN) [Concomitant]
  8. HYDROCORTISONE [Suspect]
  9. CASTOR OIL (RICINUS COMMUNIS OIL) [Concomitant]
  10. VITAMIN E [Concomitant]
  11. FLUDROCORTISONE ACETATE [Concomitant]
  12. LYCOPENE (LYCOPENE) [Concomitant]
  13. GARLIC (ALLIUM SATIVUM) [Concomitant]
  14. AFINITOR [Suspect]
     Dosage: 10 MG, QD, HALF TABLET QOD
     Dates: start: 20091224
  15. AFINITOR [Suspect]
     Dosage: 10 MG, QD, HALF TABLET QOD
     Dates: start: 20090101
  16. FLAXSEED OIL (LINUM USITATISSIUM SEED OIL) [Concomitant]

REACTIONS (6)
  - BLOOD SODIUM DECREASED [None]
  - STOMATITIS [None]
  - BLOOD CHOLESTEROL INCREASED [None]
  - DIARRHOEA [None]
  - GASTROINTESTINAL ULCER [None]
  - POLLAKIURIA [None]
